FAERS Safety Report 15082388 (Version 1)
Quarter: 2018Q2

REPORT INFORMATION
  Report Type: Spontaneous
  Country: US (occurrence: US)
  Receive Date: 20180628
  Receipt Date: 20180628
  Transmission Date: 20180711
  Serious: Yes (Life-Threatening, Other)
  Sender: FDA-Public Use
  Company Number: US-PFIZER INC-2018257993

PATIENT
  Age: 75 Year

DRUGS (5)
  1. TIGECYCLINE. [Suspect]
     Active Substance: TIGECYCLINE
     Dosage: 50 MG, 2X/DAY AT A LOADING DOSE
     Route: 042
  2. COLISTIN [Suspect]
     Active Substance: COLISTIN
     Indication: CNS VENTRICULITIS
     Dosage: 2 MILLION IU, 3X/DAY, (8 HOURLY)
     Route: 042
  3. TIGECYCLINE. [Suspect]
     Active Substance: TIGECYCLINE
     Indication: CNS VENTRICULITIS
     Dosage: 100 MG, 2X/DAY AT A LOADING DOSE
     Route: 042
  4. COLISTIN [Suspect]
     Active Substance: COLISTIN
     Dosage: 200000 IU, DAILY
     Route: 020
  5. COLISTIN [Suspect]
     Active Substance: COLISTIN
     Dosage: 2 MILLION IU, DAILY, (24 HOURLY ON THE 12TH DAY OF STARTING COLISTIN)
     Route: 042

REACTIONS (2)
  - Pathogen resistance [Unknown]
  - Toxic shock syndrome [Unknown]
